FAERS Safety Report 4939133-X (Version None)
Quarter: 2006Q1

REPORT INFORMATION
  Report Type: 
  Country: None (occurrence: None)
  Receive Date: 20060306
  Receipt Date: 20060221
  Transmission Date: 20060701
  Serious: Yes (Disabling, Other)
  Sender: FDA-Public Use
  Company Number: 2006024639

PATIENT
  Sex: Male
  Weight: 60 kg

DRUGS (2)
  1. AROMASIN [Suspect]
     Indication: BREAST CANCER
     Dosage: 25 MG (1 IN 1 D), ORAL
     Route: 048
     Dates: start: 20051219, end: 20060216
  2. BETOLVEX (CYANOCOBALAMIN-TANNIN COMPLEX) [Concomitant]

REACTIONS (5)
  - ATRIAL FIBRILLATION [None]
  - CEREBROVASCULAR ACCIDENT [None]
  - DIARRHOEA [None]
  - DRUG INEFFECTIVE [None]
  - WEIGHT DECREASED [None]
